FAERS Safety Report 11442208 (Version 12)
Quarter: 2024Q4

REPORT INFORMATION
  Report Type: Spontaneous
  Country: US (occurrence: US)
  Receive Date: 20150901
  Receipt Date: 20241105
  Transmission Date: 20250115
  Serious: Yes (Hospitalization, Other)
  Sender: PFIZER
  Company Number: US-PFIZER INC-2015286059

PATIENT
  Age: 59 Year
  Sex: Female
  Weight: 55 kg

DRUGS (17)
  1. PREMARIN [Suspect]
     Active Substance: ESTROGENS, CONJUGATED
     Indication: Hot flush
     Dosage: 0.45 MG, UNK
  2. PREMARIN [Suspect]
     Active Substance: ESTROGENS, CONJUGATED
     Indication: Menopausal symptoms
     Dosage: 0.625 (NO UNIT PROVIDED), 2X/DAY
  3. PREMARIN [Suspect]
     Active Substance: ESTROGENS, CONJUGATED
     Indication: Hysterectomy
     Dosage: 0.625 MG, 1X/DAY
     Route: 048
     Dates: end: 202001
  4. PREMARIN [Suspect]
     Active Substance: ESTROGENS, CONJUGATED
     Dosage: UNK
  5. SYNTHROID [Concomitant]
     Active Substance: LEVOTHYROXINE SODIUM
     Indication: Thyroid disorder
     Dosage: 50 UG, DAILY (ONE OF THOSE A DAY)
  6. TOPROL XL [Concomitant]
     Active Substance: METOPROLOL SUCCINATE
     Indication: Hypertension
     Dosage: 25 MG, 2X/DAY (TWICE A DAY ONE IN MORNING AND ONE IN EVENING)
  7. PROTONIX [Concomitant]
     Active Substance: PANTOPRAZOLE SODIUM
     Indication: Road traffic accident
     Dosage: 40 MG, 2X/DAY
  8. LORAZEPAM [Concomitant]
     Active Substance: LORAZEPAM
     Dosage: 2 MG, DAILY (1 MG TABLET TWO OF THOSE AT BED TIME)
  9. GABAPENTIN [Concomitant]
     Active Substance: GABAPENTIN
     Dosage: 300 MG EACH TABLET, 4 TO 6 TIMES A DAY
  10. CELEBREX [Concomitant]
     Active Substance: CELECOXIB
     Indication: Fibromyalgia
     Dosage: 200 MG, 2X/DAY
     Route: 048
     Dates: end: 202002
  11. CELEBREX [Concomitant]
     Active Substance: CELECOXIB
     Indication: Intervertebral disc protrusion
  12. CELEBREX [Concomitant]
     Active Substance: CELECOXIB
     Indication: Sciatica
  13. CELEBREX [Concomitant]
     Active Substance: CELECOXIB
     Indication: Spinal stenosis
  14. CELEBREX [Concomitant]
     Active Substance: CELECOXIB
     Indication: Rheumatoid arthritis
  15. LIDODERM [Concomitant]
     Active Substance: LIDOCAINE
     Dosage: 5 %, DAILY (LIDOCAINE PATCHES THREE OF THOSE A DAY)
  16. SUDAFED [Concomitant]
     Active Substance: PSEUDOEPHEDRINE HYDROCHLORIDE
     Indication: Sinus disorder
     Dosage: UNK
  17. AMLODIPINE BESYLATE [Concomitant]
     Active Substance: AMLODIPINE BESYLATE
     Indication: Blood pressure abnormal
     Dosage: 2.5 MG

REACTIONS (5)
  - Seizure [Unknown]
  - Syncope [Recovered/Resolved]
  - Drug ineffective [Unknown]
  - Product prescribing error [Unknown]
  - Gastrointestinal disorder [Unknown]

NARRATIVE: CASE EVENT DATE: 20210501
